FAERS Safety Report 6026490-9 (Version None)
Quarter: 2009Q1

REPORT INFORMATION
  Report Type: 
  Country: None (occurrence: None)
  Receive Date: 20090102
  Receipt Date: 20081226
  Transmission Date: 20090719
  Serious: Yes (Hospitalization)
  Sender: FDA-Public Use
  Company Number: US-BIOGENIDEC-2008BI028410

PATIENT
  Age: 60 Year
  Sex: Female

DRUGS (2)
  1. AVONEX [Suspect]
     Indication: MULTIPLE SCLEROSIS
     Route: 030
     Dates: start: 20081018
  2. AVONEX [Suspect]
     Route: 030
     Dates: end: 20080928

REACTIONS (3)
  - OOPHORECTOMY [None]
  - PELVIC PROLAPSE [None]
  - RECTOCELE [None]
